FAERS Safety Report 7665555-2 (Version None)
Quarter: 2011Q3

REPORT INFORMATION
  Report Type: 
  Country: None (occurrence: None)
  Receive Date: 20110806
  Receipt Date: 20110523
  Transmission Date: 20111222
  Serious: No
  Sender: FDA-Public Use
  Company Number: US-ABBOTT-11P-163-0727737-00

PATIENT
  Sex: Female

DRUGS (2)
  1. NIASPAN [Suspect]
     Indication: CARDIOVASCULAR DISORDER
     Dosage: AT BEDTIME
     Dates: start: 20110518
  2. NIASPAN [Suspect]
     Indication: LIPIDS NORMAL

REACTIONS (3)
  - FLUSHING [None]
  - FEELING HOT [None]
  - BURNING SENSATION [None]
